FAERS Safety Report 4529434-1 (Version None)
Quarter: 2004Q4

REPORT INFORMATION
  Report Type: 
  Country: None (occurrence: None)
  Receive Date: 20041202
  Receipt Date: 20040916
  Transmission Date: 20050328
  Serious: No
  Sender: FDA-Public Use
  Company Number: 200420557BWH

PATIENT
  Sex: Male

DRUGS (3)
  1. LEVITRA [Suspect]
     Dosage: 10 MG, PRN, ORAL
     Route: 048
  2. LEVITRA [Suspect]
     Dosage: 20 MG, PRN, ORAL
     Route: 048
  3. WELLBUTRIN [Concomitant]

REACTIONS (4)
  - DRUG INEFFECTIVE [None]
  - PHOTOSENSITIVITY ALLERGIC REACTION [None]
  - PRURITUS [None]
  - RASH GENERALISED [None]
